APPROVED DRUG PRODUCT: DOXYCYCLINE
Active Ingredient: DOXYCYCLINE
Strength: EQ 100MG BASE
Dosage Form/Route: CAPSULE;ORAL
Application: A204446 | Product #003
Applicant: COSETTE PHARMACEUTICALS INC
Approved: May 28, 2015 | RLD: No | RS: No | Type: DISCN